FAERS Safety Report 4841626-0 (Version None)
Quarter: 2005Q4

REPORT INFORMATION
  Report Type: 
  Country: None (occurrence: None)
  Receive Date: 20051130
  Receipt Date: 20050912
  Transmission Date: 20060501
  Serious: No
  Sender: FDA-Public Use
  Company Number: US-GLAXOSMITHKLINE-A0573848A

PATIENT
  Age: 11 Year
  Sex: Male

DRUGS (2)
  1. WELLBUTRIN XL [Suspect]
     Indication: DEPRESSION
     Dosage: 75MG TWICE PER DAY
     Route: 048
     Dates: start: 20050910
  2. DEPAKOTE [Concomitant]

REACTIONS (1)
  - HYPOAESTHESIA ORAL [None]
